FAERS Safety Report 18243306 (Version 2)
Quarter: 2020Q3

REPORT INFORMATION
  Report Type: Spontaneous
  Country: JP (occurrence: JP)
  Receive Date: 20200908
  Receipt Date: 20200916
  Transmission Date: 20201103
  Serious: Yes (Life-Threatening, Other)
  Sender: FDA-Public Use
  Company Number: JP-ASTRAZENECA-2020SF13859

PATIENT
  Age: 90 Year
  Sex: Male

DRUGS (10)
  1. AMLODIPINE BESILATE [Concomitant]
     Active Substance: AMLODIPINE BESYLATE
  2. ASPIRIN. [Concomitant]
     Active Substance: ASPIRIN
  3. CLARITHROMYCIN. [Concomitant]
     Active Substance: CLARITHROMYCIN
  4. CARVEDILOL. [Concomitant]
     Active Substance: CARVEDILOL
  5. PITAVASTATIN CALCIUM [Concomitant]
     Active Substance: PITAVASTATIN CALCIUM
  6. NEXIUM [Suspect]
     Active Substance: ESOMEPRAZOLE MAGNESIUM
     Dosage: DOSE UNKNOWN
     Route: 048
  7. TAMSULOSIN HYDROCHLORIDE. [Concomitant]
     Active Substance: TAMSULOSIN HYDROCHLORIDE
  8. TELMISARTAN. [Concomitant]
     Active Substance: TELMISARTAN
  9. CLOTIAZEPAM [Concomitant]
     Active Substance: CLOTIAZEPAM
  10. BROMHEXINE HYDROCHLORIDE [Concomitant]
     Active Substance: BROMHEXINE HYDROCHLORIDE

REACTIONS (6)
  - Blood pressure decreased [Unknown]
  - Iliac artery occlusion [Unknown]
  - Gastric haemorrhage [Unknown]
  - Necrosis of artery [Unknown]
  - Perforation [Unknown]
  - Gastric cancer [Unknown]
